FAERS Safety Report 5801004-4 (Version None)
Quarter: 2008Q3

REPORT INFORMATION
  Report Type: 
  Country: None (occurrence: None)
  Receive Date: 20080702
  Receipt Date: 20080617
  Transmission Date: 20090109
  Serious: Yes (Hospitalization)
  Sender: FDA-Public Use
  Company Number: 2008AL003485

PATIENT
  Age: 71 Year
  Sex: Male
  Weight: 78.0187 kg

DRUGS (13)
  1. DIGOXIN [Suspect]
     Indication: MYOCARDIAL INFARCTION
     Dosage: 0.25MG DAILY PO
     Route: 048
     Dates: end: 20080505
  2. AMITRIPTYLINE HCL [Concomitant]
  3. METOPROLOL [Concomitant]
  4. DIAZEPAM [Concomitant]
  5. COUMADIN [Concomitant]
  6. ZOOR [Concomitant]
  7. TORSEMIDE [Concomitant]
  8. LANTUS [Concomitant]
  9. HUMALOG [Concomitant]
  10. VITAMIN B-12 [Concomitant]
  11. PRILOSEC [Concomitant]
  12. PLETAL [Concomitant]
  13. NEURONTIN [Concomitant]

REACTIONS (7)
  - ANGINA PECTORIS [None]
  - ASTHENIA [None]
  - EYE SWELLING [None]
  - HYPOAESTHESIA [None]
  - HYPOTENSION [None]
  - MYOCARDIAL INFARCTION [None]
  - TRANSIENT ISCHAEMIC ATTACK [None]
